FAERS Safety Report 7408739-0 (Version None)
Quarter: 2011Q2

REPORT INFORMATION
  Report Type: 
  Country: None (occurrence: None)
  Receive Date: 20110412
  Receipt Date: 20110404
  Transmission Date: 20111010
  Serious: Yes (Life-Threatening, Hospitalization)
  Sender: FDA-Public Use
  Company Number: FR-BRISTOL-MYERS SQUIBB COMPANY-15665128

PATIENT
  Age: 81 Year
  Sex: Male

DRUGS (12)
  1. TRIATEC [Concomitant]
  2. OMEPRAZOLE [Concomitant]
  3. CORTANCYL [Concomitant]
  4. NOCTAMIDE [Concomitant]
  5. KARDEGIC [Concomitant]
  6. FLAGYL [Concomitant]
  7. GLUCOPHAGE [Suspect]
     Indication: TYPE 2 DIABETES MELLITUS
     Dosage: DURATION OF THERAPY:YEARS
  8. TAHOR [Concomitant]
  9. ACETAMINOPHEN [Concomitant]
  10. HEXAQUINE [Concomitant]
  11. KERLONE [Concomitant]
  12. AMLODIPINE BESYLATE [Concomitant]

REACTIONS (3)
  - LACTIC ACIDOSIS [None]
  - RENAL FAILURE ACUTE [None]
  - DIARRHOEA [None]
